FAERS Safety Report 5745445-2 (Version None)
Quarter: 2008Q2

REPORT INFORMATION
  Report Type: 
  Country: None (occurrence: None)
  Receive Date: 20080519
  Receipt Date: 20080125
  Transmission Date: 20081010
  Serious: No
  Sender: FDA-Public Use
  Company Number: TPA2007A02138

PATIENT
  Age: 64 Year
  Sex: Female
  Weight: 68.0396 kg

DRUGS (1)
  1. ROZEREM [Suspect]
     Indication: INSOMNIA
     Dosage: 4 MG, QHS, PER ORAL
     Route: 048
     Dates: start: 20060901, end: 20060901

REACTIONS (5)
  - HALLUCINATION [None]
  - NIGHTMARE [None]
  - TACHYCARDIA [None]
  - TREMOR [None]
  - UNDERDOSE [None]
